FAERS Safety Report 9843726 (Version 6)
Quarter: 2014Q3

REPORT INFORMATION
  Report Type: Spontaneous
  Country: US (occurrence: US)
  Receive Date: 20140126
  Receipt Date: 20140902
  Transmission Date: 20150326
  Serious: No
  Sender: FDA-Public Use
  Company Number: US-009507513-1401USA004426

PATIENT
  Sex: Female

DRUGS (8)
  1. PEGASYS [Suspect]
     Active Substance: PEGINTERFERON ALFA-2A
     Dosage: 180 MICROGRAM, QW
     Route: 058
     Dates: start: 2014, end: 20140730
  2. VICTRELIS [Suspect]
     Active Substance: BOCEPREVIR
     Indication: CHRONIC HEPATITIS C
     Dosage: UNK
     Route: 048
     Dates: start: 20130920, end: 20140430
  3. REBETOL [Suspect]
     Active Substance: RIBAVIRIN
     Dosage: 600 MG, 1 IN 1 DAY
     Route: 048
     Dates: start: 201311
  4. PEGASYS [Suspect]
     Active Substance: PEGINTERFERON ALFA-2A
     Indication: CHRONIC HEPATITIS C
     Dosage: 180 MICROGRAM, QW, PROCLICK
     Route: 058
     Dates: start: 20130823
  5. PEGASYS [Suspect]
     Active Substance: PEGINTERFERON ALFA-2A
     Dosage: 90 MICROGRAM, QW
     Route: 058
     Dates: start: 20140402, end: 2014
  6. REBETOL [Suspect]
     Active Substance: RIBAVIRIN
     Indication: CHRONIC HEPATITIS C
     Dosage: DIVIDED DOSES (1 IN 1 DAY)
     Route: 048
     Dates: start: 20130823, end: 2013
  7. PEGASYS [Suspect]
     Active Substance: PEGINTERFERON ALFA-2A
     Dosage: 135 MICROGRAM, QW
     Route: 058
     Dates: start: 20140303, end: 201403
  8. PEGASYS [Suspect]
     Active Substance: PEGINTERFERON ALFA-2A
     Dosage: 180 MICROGRAM, QW
     Route: 058
     Dates: start: 20140312, end: 2014

REACTIONS (8)
  - Chills [Not Recovered/Not Resolved]
  - Influenza like illness [Unknown]
  - Tremor [Not Recovered/Not Resolved]
  - Pain [Unknown]
  - Blood count abnormal [Unknown]
  - White blood cell count decreased [Unknown]
  - Rash [Unknown]
  - Headache [Recovered/Resolved]
